FAERS Safety Report 7167511-X (Version None)
Quarter: 2010Q4

REPORT INFORMATION
  Report Type: 
  Country: None (occurrence: None)
  Receive Date: 20101216
  Receipt Date: 20100219
  Transmission Date: 20110411
  Serious: No
  Sender: FDA-Public Use
  Company Number: A0845341A

PATIENT
  Age: 69 Year
  Sex: Female

DRUGS (4)
  1. NICOTINE POLACRILEX [Suspect]
     Route: 048
  2. NICOTINE POLACRILEX [Suspect]
     Route: 048
  3. NICOTINE POLACRILEX [Suspect]
     Route: 048
  4. CHLORHEXIDINE GLUCONATE [Concomitant]

REACTIONS (6)
  - ABDOMINAL DISCOMFORT [None]
  - DRUG ADMINISTRATION ERROR [None]
  - INTENTIONAL DRUG MISUSE [None]
  - NICOTINE DEPENDENCE [None]
  - OEDEMA MOUTH [None]
  - STOMATITIS [None]
